FAERS Safety Report 7953195-7 (Version None)
Quarter: 2011Q4

REPORT INFORMATION
  Report Type: 
  Country: None (occurrence: None)
  Receive Date: 20111201
  Receipt Date: 20111122
  Transmission Date: 20120403
  Serious: Yes (Other)
  Sender: FDA-Public Use
  Company Number: JP-ASTRAZENECA-2011SE70487

PATIENT
  Age: 70 Year
  Sex: Female

DRUGS (2)
  1. OMEPRAZOLE [Suspect]
     Indication: GASTROOESOPHAGEAL REFLUX DISEASE
     Route: 048
     Dates: start: 20111001
  2. OMEPRAZOLE [Suspect]
     Route: 048

REACTIONS (2)
  - RASH [None]
  - RETINAL VEIN OCCLUSION [None]
